FAERS Safety Report 14803154 (Version 2)
Quarter: 2018Q4

REPORT INFORMATION
  Report Type: Spontaneous
  Country: FR (occurrence: FR)
  Receive Date: 20180425
  Receipt Date: 20181025
  Transmission Date: 20190204
  Serious: Yes (Other)
  Sender: FDA-Public Use
  Company Number: FR-MERCK KGAA-2046424

PATIENT
  Age: 57 Year
  Sex: Female

DRUGS (1)
  1. EUTHYROX [Suspect]
     Active Substance: LEVOTHYROXINE SODIUM
     Indication: PRODUCT USED FOR UNKNOWN INDICATION
     Dates: start: 201706, end: 2017

REACTIONS (20)
  - Musculoskeletal pain [None]
  - Pain [None]
  - Blood pressure increased [None]
  - Hyperhidrosis [None]
  - Tachycardia [None]
  - Pain in extremity [None]
  - Eye disorder [None]
  - Nausea [None]
  - Insomnia [None]
  - Myalgia [None]
  - Anxiety [None]
  - Chromaturia [None]
  - Muscle spasms [None]
  - Loss of consciousness [None]
  - Polyuria [None]
  - Loss of personal independence in daily activities [None]
  - Bradycardia [None]
  - Fatigue [None]
  - Aphasia [None]
  - Blood thyroid stimulating hormone increased [None]

NARRATIVE: CASE EVENT DATE: 201706
